FAERS Safety Report 17739604 (Version 1)
Quarter: 2020Q2

REPORT INFORMATION
  Report Type: Spontaneous
  Country: IT (occurrence: IT)
  Receive Date: 20200504
  Receipt Date: 20200504
  Transmission Date: 20200714
  Serious: Yes (Other)
  Sender: FDA-Public Use
  Company Number: IT-DRREDDYS-GER/ITL/20/0122482

PATIENT
  Age: 8 Year
  Sex: Female

DRUGS (2)
  1. IMATINIB. [Suspect]
     Active Substance: IMATINIB MESYLATE
     Indication: CHRONIC MYELOID LEUKAEMIA
     Dosage: 340 MG/M2, QD
  2. IMATINIB. [Suspect]
     Active Substance: IMATINIB MESYLATE
     Dosage: 340 MG/M2, QD; (THREE WEEKS ON AND ONE WEEK OFF, ON/OFF SCHEDULE)

REACTIONS (4)
  - Treatment failure [Unknown]
  - Pubertal failure [Unknown]
  - Bone metabolism disorder [Unknown]
  - Growth retardation [Unknown]
